FAERS Safety Report 20137405 (Version 1)
Quarter: 2021Q4

REPORT INFORMATION
  Report Type: Report from Study
  Country: CA (occurrence: CA)
  Receive Date: 20211201
  Receipt Date: 20211201
  Transmission Date: 20220303
  Serious: Yes (Other)
  Sender: FDA-Public Use
  Company Number: CA-ABBVIE-21K-028-4177745-00

PATIENT
  Sex: Female

DRUGS (1)
  1. RINVOQ [Suspect]
     Active Substance: UPADACITINIB
     Indication: Rheumatoid arthritis
     Route: 048
     Dates: start: 20210130, end: 20210823

REACTIONS (4)
  - Osteoarthritis [Unknown]
  - Myalgia [Unknown]
  - Pain of skin [Unknown]
  - Bone disorder [Unknown]

NARRATIVE: CASE EVENT DATE: 20210101
